FAERS Safety Report 17779516 (Version 4)
Quarter: 2021Q4

REPORT INFORMATION
  Report Type: Spontaneous
  Country: DE (occurrence: DE)
  Receive Date: 20200513
  Receipt Date: 20211008
  Transmission Date: 20220304
  Serious: Yes (Hospitalization, Other)
  Sender: FDA-Public Use
  Company Number: DE-ANIPHARMA-2020-DE-000095

PATIENT
  Sex: Male

DRUGS (8)
  1. CANDESARTAN [Suspect]
     Active Substance: CANDESARTAN
     Indication: Hypertension
     Dosage: 32 MG UNK
     Route: 048
     Dates: start: 20180925
  2. VALSARTAN [Suspect]
     Active Substance: VALSARTAN
     Dosage: 160 MG UNK / 160 MG UNK / 160 MG UNK / 160 MG UNK / 160 MG UNK / 320 MG UNK / 320 MG UNK / 320 MG
     Route: 065
     Dates: start: 20150910, end: 20180706
  3. METOSUCCINAT [Concomitant]
     Dosage: 47.5 MG UNK /95 MG UNK
     Route: 065
  4. AMLODIPINE [Concomitant]
     Active Substance: AMLODIPINE BESYLATE
     Dosage: 5 MG BID
     Route: 065
     Dates: start: 201611
  5. SIMVASTATIN [Concomitant]
     Active Substance: SIMVASTATIN
     Dosage: 20 MG QD
     Route: 065
     Dates: start: 201611
  6. TICAGRELOR [Concomitant]
     Active Substance: TICAGRELOR
     Dosage: 90 MG UNK
     Route: 048
     Dates: start: 20161114, end: 201711
  7. ASPIRIN [Concomitant]
     Active Substance: ASPIRIN
     Dosage: UNKNOWN DOSE AND FREQUENCY
     Route: 065
     Dates: start: 201611
  8. VALSARTAN [Suspect]
     Active Substance: VALSARTAN
     Route: 065
     Dates: start: 20180622

REACTIONS (16)
  - Hyperlipidaemia [Unknown]
  - General physical health deterioration [Unknown]
  - Quality of life decreased [Unknown]
  - Depressed mood [Unknown]
  - Myalgia [Unknown]
  - Fear [Unknown]
  - Asthenia [Unknown]
  - Middle insomnia [Unknown]
  - Joint swelling [Unknown]
  - Emotional distress [Unknown]
  - Renal pain [Unknown]
  - Mitral valve incompetence [Unknown]
  - Anxiety [Unknown]
  - Acute myocardial infarction [Unknown]
  - Carotid arteriosclerosis [Unknown]
  - Coronary artery stenosis [Unknown]

NARRATIVE: CASE EVENT DATE: 20160101
